FAERS Safety Report 6979357-3 (Version None)
Quarter: 2010Q3

REPORT INFORMATION
  Report Type: 
  Country: None (occurrence: None)
  Receive Date: 20100913
  Receipt Date: 20100901
  Transmission Date: 20110219
  Serious: Yes (Hospitalization)
  Sender: FDA-Public Use
  Company Number: CA-WYE-H17362310

PATIENT
  Age: 50 Year
  Sex: Male

DRUGS (1)
  1. TECTA [Suspect]
     Route: 048

REACTIONS (8)
  - ABDOMINAL PAIN [None]
  - FATIGUE [None]
  - HEADACHE [None]
  - MUSCLE SPASMS [None]
  - NAUSEA [None]
  - PERIPHERAL COLDNESS [None]
  - PHOTOPHOBIA [None]
  - PYREXIA [None]
